FAERS Safety Report 20454236 (Version 1)
Quarter: 2022Q1

REPORT INFORMATION
  Report Type: Spontaneous
  Country: US (occurrence: US)
  Receive Date: 20220210
  Receipt Date: 20220210
  Transmission Date: 20220424
  Serious: Yes (Hospitalization)
  Sender: FDA-Public Use
  Company Number: US-MORPHOSYS US-2021-MOR001385-US

PATIENT
  Age: 73 Year
  Sex: Male

DRUGS (1)
  1. MONJUVI [Suspect]
     Active Substance: TAFASITAMAB-CXIX
     Indication: Diffuse large B-cell lymphoma refractory
     Dosage: 1320 MILLIGRAM 12MG/KG CYCLE 1 D1, 4.
     Route: 042
     Dates: start: 20211014, end: 20211018

REACTIONS (1)
  - Sepsis [Recovered/Resolved]

NARRATIVE: CASE EVENT DATE: 20211020
